FAERS Safety Report 8295405-5 (Version None)
Quarter: 2012Q2

REPORT INFORMATION
  Report Type: 
  Country: None (occurrence: None)
  Receive Date: 20120418
  Receipt Date: 20120410
  Transmission Date: 20120825
  Serious: Yes (Hospitalization, Other)
  Sender: FDA-Public Use
  Company Number: US-ASTRAZENECA-2010SE51860

PATIENT
  Age: 49 Year
  Sex: Male

DRUGS (13)
  1. PRILOSEC [Concomitant]
     Route: 048
  2. COREG [Concomitant]
  3. LISINOPRIL [Concomitant]
     Route: 048
  4. ATENOLOL [Concomitant]
  5. VICODIN [Concomitant]
  6. PRILOSEC OTC [Suspect]
     Route: 048
  7. ASPIRIN [Concomitant]
  8. LIPITOR [Concomitant]
  9. NITROGLYCERIN [Concomitant]
     Dosage: AS NEEDED
     Route: 060
  10. NICODERM [Concomitant]
  11. ASPIRIN [Concomitant]
  12. PERCOCET [Concomitant]
     Indication: PAIN
     Dosage: 5/325 ONE TO TWO AS NEEDED
     Route: 048
  13. NEXIUM [Suspect]
     Route: 048

REACTIONS (16)
  - ELECTRIC SHOCK [None]
  - HYPERLIPIDAEMIA [None]
  - FLANK PAIN [None]
  - CORONARY ARTERY DISEASE [None]
  - HYPERTENSION [None]
  - TOBACCO ABUSE [None]
  - PEPTIC ULCER PERFORATION [None]
  - DYSPEPSIA [None]
  - CONDITION AGGRAVATED [None]
  - FEELING ABNORMAL [None]
  - INTENTIONAL DRUG MISUSE [None]
  - DISTURBANCE IN ATTENTION [None]
  - PROCEDURAL PAIN [None]
  - ACUTE MYOCARDIAL INFARCTION [None]
  - PNEUMONIA [None]
  - DRUG INEFFECTIVE [None]
